FAERS Safety Report 5245948-3 (Version None)
Quarter: 2007Q1

REPORT INFORMATION
  Report Type: 
  Country: None (occurrence: None)
  Receive Date: 20070220
  Receipt Date: 20070208
  Transmission Date: 20070707
  Serious: Yes (Life-Threatening, Other)
  Sender: FDA-Public Use
  Company Number: 15655

PATIENT
  Age: 60 Year
  Sex: Male

DRUGS (6)
  1. DROPERIDOL [Suspect]
     Indication: PROPHYLAXIS OF NAUSEA AND VOMITING
     Dosage: 1 MG UNK IV
     Route: 042
  2. MIDAZOLAM HCL [Concomitant]
  3. ATROPINE [Concomitant]
  4. FENTANYL CITRATE [Concomitant]
  5. VECURONIUM BROMIDE [Concomitant]
  6. NO2 [Concomitant]

REACTIONS (8)
  - ARTERIOSPASM CORONARY [None]
  - BLOOD CALCIUM DECREASED [None]
  - ELECTROCARDIOGRAM ST SEGMENT DEPRESSION [None]
  - ELECTROCARDIOGRAM ST SEGMENT ELEVATION [None]
  - PROCEDURAL COMPLICATION [None]
  - TORSADE DE POINTES [None]
  - VENTRICULAR EXTRASYSTOLES [None]
  - VENTRICULAR FIBRILLATION [None]
